FAERS Safety Report 12192339 (Version 2)
Quarter: 2016Q2

REPORT INFORMATION
  Report Type: Spontaneous
  Country: US (occurrence: US)
  Receive Date: 20160318
  Receipt Date: 20160413
  Transmission Date: 20160815
  Serious: No
  Sender: FDA-Public Use
  Company Number: US-GLAXOSMITHKLINE-US2016035700

PATIENT
  Age: 83 Year
  Sex: Female

DRUGS (17)
  1. DIGOXIN. [Concomitant]
     Active Substance: DIGOXIN
  2. POTASSIUM CHLORIDE. [Concomitant]
     Active Substance: POTASSIUM CHLORIDE
  3. LEVOTHYROXINE. [Concomitant]
     Active Substance: LEVOTHYROXINE
  4. VALSARTAN. [Concomitant]
     Active Substance: VALSARTAN
  5. VENTOLIN HFA [Concomitant]
     Active Substance: ALBUTEROL SULFATE
     Dosage: UNK
  6. ZETIA [Concomitant]
     Active Substance: EZETIMIBE
  7. GABAPENTIN. [Concomitant]
     Active Substance: GABAPENTIN
  8. HYDROCHLOROTHIAZIDE. [Concomitant]
     Active Substance: HYDROCHLOROTHIAZIDE
  9. WARFARIN [Concomitant]
     Active Substance: WARFARIN
  10. OMEGA-3-ACID ETHYL ESTERS. [Concomitant]
     Active Substance: OMEGA-3-ACID ETHYL ESTERS
  11. ATENOLOL. [Concomitant]
     Active Substance: ATENOLOL
  12. ANORO ELLIPTA [Suspect]
     Active Substance: UMECLIDINIUM BROMIDE\VILANTEROL TRIFENATATE
     Indication: TOTAL LUNG CAPACITY DECREASED
     Dosage: 1 PUFF(S), QD
     Route: 055
     Dates: start: 201601
  13. FENOFIBRATE. [Concomitant]
     Active Substance: FENOFIBRATE
  14. ISOSORB [Concomitant]
  15. TRIAMCINOLONE [Concomitant]
     Active Substance: TRIAMCINOLONE
  16. NIFEDICAL XL [Concomitant]
     Active Substance: NIFEDIPINE
  17. NYSTATIN (TOPICAL) [Concomitant]

REACTIONS (5)
  - Dysphonia [Not Recovered/Not Resolved]
  - Cough [Recovering/Resolving]
  - Stomatitis [Recovered/Resolved]
  - Upper-airway cough syndrome [Recovering/Resolving]
  - Throat irritation [Recovering/Resolving]

NARRATIVE: CASE EVENT DATE: 201602
